FAERS Safety Report 4525924-6 (Version None)
Quarter: 2004Q4

REPORT INFORMATION
  Report Type: 
  Country: None (occurrence: None)
  Receive Date: 20041213
  Receipt Date: 20040617
  Transmission Date: 20050328
  Serious: Yes (Death, Other)
  Sender: FDA-Public Use
  Company Number: PHHO2004CA08705

PATIENT
  Sex: Female

DRUGS (4)
  1. CLOZARIL [Suspect]
     Indication: SCHIZOPHRENIA
     Dosage: NOT REPORTED
     Route: 048
     Dates: start: 19990902
  2. DEXTROMETHORPHAN HYDROBROMIDE [Suspect]
  3. PAROXETINE [Suspect]
  4. FLURAZEPAM [Suspect]

REACTIONS (3)
  - CARDIOMEGALY [None]
  - DRUG INTERACTION [None]
  - DRUG TOXICITY [None]
